FAERS Safety Report 7638850-0 (Version None)
Quarter: 2011Q3

REPORT INFORMATION
  Report Type: 
  Country: None (occurrence: None)
  Receive Date: 20110721
  Receipt Date: 20110715
  Transmission Date: 20111222
  Serious: Yes (Death, Hospitalization)
  Sender: FDA-Public Use
  Company Number: 2011SP018098

PATIENT
  Age: 73 Year
  Sex: Male
  Weight: 80 kg

DRUGS (25)
  1. METFORMIN HCL [Concomitant]
  2. SENNA [Concomitant]
  3. RADIATION THERAPY [Suspect]
     Indication: OLIGODENDROGLIOMA
     Dates: start: 20110309
  4. TEMODAR [Concomitant]
  5. FLAGYL [Concomitant]
  6. CANDESARTAN CILEXETIL [Concomitant]
  7. CATAPRES [Concomitant]
  8. COREG [Concomitant]
  9. VITAMIN E [Concomitant]
  10. HUMULIN R [Concomitant]
  11. CARVEDILOL [Concomitant]
  12. LANTUS [Concomitant]
  13. TEMODAR [Suspect]
     Indication: OLIGODENDROGLIOMA
     Dates: start: 20101102
  14. TEMODAR [Suspect]
     Indication: OLIGODENDROGLIOMA
     Dates: start: 20110309, end: 20110313
  15. OMEPRAZOLE [Concomitant]
  16. LIPITOR [Concomitant]
  17. DIGOXIN [Concomitant]
  18. WELLBUTRIN [Concomitant]
  19. BENICAR HCT [Concomitant]
  20. TRENTAL [Concomitant]
  21. ZOFRAN [Concomitant]
  22. ASPIRIN [Concomitant]
  23. AMARYL [Concomitant]
  24. COMPAZINE [Concomitant]
  25. NITROGLYCERIN [Concomitant]

REACTIONS (26)
  - LARGE INTESTINAL HAEMORRHAGE [None]
  - ACUTE MYOCARDIAL INFARCTION [None]
  - NEOPLASM PROGRESSION [None]
  - MENTAL STATUS CHANGES [None]
  - HYPOREFLEXIA [None]
  - CONFUSIONAL STATE [None]
  - CHOLECYSTITIS ACUTE [None]
  - PULSE PRESSURE DECREASED [None]
  - CONVULSION [None]
  - HAEMOGLOBIN DECREASED [None]
  - CHOLANGITIS [None]
  - HYPOPHAGIA [None]
  - ATRIAL FIBRILLATION [None]
  - STARING [None]
  - BLOOD GLUCOSE INCREASED [None]
  - HALLUCINATION [None]
  - RENAL INFARCT [None]
  - ACTIVITIES OF DAILY LIVING IMPAIRED [None]
  - DECREASED APPETITE [None]
  - MOBILITY DECREASED [None]
  - PERIPHERAL COLDNESS [None]
  - INCONTINENCE [None]
  - AGITATION [None]
  - CHOLELITHIASIS [None]
  - OLIGODENDROGLIOMA [None]
  - SKIN HYPERPIGMENTATION [None]
